FAERS Safety Report 7171040-7 (Version None)
Quarter: 2010Q4

REPORT INFORMATION
  Report Type: 
  Country: None (occurrence: None)
  Receive Date: 20101203
  Receipt Date: 20101122
  Transmission Date: 20110411
  Serious: Yes (Hospitalization)
  Sender: FDA-Public Use
  Company Number: LEO-2010-01065

PATIENT
  Age: 27 Year
  Sex: Female

DRUGS (2)
  1. TACLONEX [Suspect]
     Indication: PSORIASIS
     Dosage: (60 GM,1)
  2. INFLIXIMAB (INFLIXIMAB) [Concomitant]

REACTIONS (7)
  - ADRENAL SUPPRESSION [None]
  - HYPERADRENOCORTICISM [None]
  - HYPOTHALAMO-PITUITARY DISORDER [None]
  - OFF LABEL USE [None]
  - OVERDOSE [None]
  - PSORIASIS [None]
  - SKIN ATROPHY [None]
